FAERS Safety Report 11613873 (Version 2)
Quarter: 2015Q4

REPORT INFORMATION
  Report Type: Spontaneous
  Country: BR (occurrence: BR)
  Receive Date: 20151008
  Receipt Date: 20151015
  Transmission Date: 20160304
  Serious: Yes (Hospitalization, Other)
  Sender: FDA-Public Use
  Company Number: BR-NOVOPROD-466072

PATIENT
  Age: 60 Year
  Sex: Male
  Weight: 90 kg

DRUGS (4)
  1. METFORMIN [Concomitant]
     Active Substance: METFORMIN HYDROCHLORIDE
     Dosage: 850 MG
  2. DAONIL [Concomitant]
     Active Substance: GLYBURIDE
  3. NOVOLIN N [Suspect]
     Active Substance: INSULIN HUMAN
     Indication: TYPE 2 DIABETES MELLITUS
     Dosage: 44 IU, QD (22 IU IN THE MORNING AND 22 IU AT NIGHT)
     Route: 065
     Dates: start: 1996
  4. TRADJENTA [Concomitant]
     Active Substance: LINAGLIPTIN
     Dosage: 5 MG

REACTIONS (2)
  - Ligament sprain [Unknown]
  - Cataract [Unknown]

NARRATIVE: CASE EVENT DATE: 2011
